FAERS Safety Report 9759954 (Version 1)
Quarter: 2013Q4

REPORT INFORMATION
  Report Type: Report from Study
  Country: US (occurrence: US)
  Receive Date: 20131216
  Receipt Date: 20131216
  Transmission Date: 20140711
  Serious: Yes (Hospitalization)
  Sender: FDA-Public Use
  Company Number: US-BAXTER-2013BAX049635

PATIENT
  Age: 52 Year
  Sex: Female
  Weight: 104 kg

DRUGS (2)
  1. GAMMAGARD LIQUID [Suspect]
     Indication: SELECTIVE IGG SUBCLASS DEFICIENCY
     Route: 042
     Dates: start: 20131013
  2. GAMMAGARD LIQUID [Suspect]
     Route: 042
     Dates: start: 20131119

REACTIONS (2)
  - Pneumonia [Recovering/Resolving]
  - Convulsion [Recovered/Resolved]
